FAERS Safety Report 13455465 (Version 2)
Quarter: 2017Q3

REPORT INFORMATION
  Report Type: Spontaneous
  Country: US (occurrence: US)
  Receive Date: 20170418
  Receipt Date: 20170919
  Transmission Date: 20171127
  Serious: No
  Sender: FDA-Public Use
  Company Number: US-BAYER-2017-068041

PATIENT
  Age: 94 Year
  Sex: Female
  Weight: 63.99 kg

DRUGS (2)
  1. CITRACAL [Suspect]
     Active Substance: CALCIUM CITRATE
     Dosage: UNK
     Route: 065
     Dates: start: 2000, end: 2016
  2. BAYER LOW DOSE [Suspect]
     Active Substance: ASPIRIN
     Indication: PROPHYLAXIS
     Dosage: 1 DF, UNK
     Route: 048
     Dates: start: 2000

REACTIONS (3)
  - Product use in unapproved indication [Unknown]
  - Product use complaint [Unknown]
  - Off label use [Unknown]
